FAERS Safety Report 11166236 (Version 2)
Quarter: 2015Q3

REPORT INFORMATION
  Report Type: Spontaneous
  Country: CN (occurrence: CN)
  Receive Date: 20150605
  Receipt Date: 20150704
  Transmission Date: 20151125
  Serious: Yes (Hospitalization, Other)
  Sender: FDA-Public Use
  Company Number: CN-SUN PHARMACEUTICAL INDUSTRIES LTD-2015RR-97541

PATIENT

DRUGS (5)
  1. CILOSTAZOL CHONGOING FORTUNE PHARMACEUTICAL [Suspect]
     Active Substance: CILOSTAZOL
     Indication: INTERMITTENT CLAUDICATION
     Dosage: ONE DOSE
     Route: 065
     Dates: start: 20141112
  2. NIFEDIPINE. [Concomitant]
     Active Substance: NIFEDIPINE
     Indication: HYPERTENSION
     Dosage: 1 DF, BID
     Route: 048
  3. PREDNISONE. [Suspect]
     Active Substance: PREDNISONE
     Indication: SYSTEMIC LUPUS ERYTHEMATOSUS
     Dosage: 30 MG, DAILY
     Route: 065
  4. CILOSTAZOL. [Concomitant]
     Active Substance: CILOSTAZOL
     Indication: INTERMITTENT CLAUDICATION
     Dosage: 100 MG, BID
     Route: 048
     Dates: start: 20141010
  5. CILOSTAZOL CHONGOING FORTUNE PHARMACEUTICAL [Suspect]
     Active Substance: CILOSTAZOL
     Indication: INTERMITTENT CLAUDICATION
     Dosage: UNK
     Route: 065
     Dates: start: 20141102

REACTIONS (7)
  - Arteriosclerosis [Recovering/Resolving]
  - Kounis syndrome [Recovering/Resolving]
  - Acute myocardial infarction [Recovering/Resolving]
  - Cardiogenic shock [Recovering/Resolving]
  - Rash maculo-papular [Recovered/Resolved]
  - Drug hypersensitivity [Recovering/Resolving]
  - Anaphylactic reaction [Recovered/Resolved]
